FAERS Safety Report 10163751 (Version 1)
Quarter: 2014Q2

REPORT INFORMATION
  Report Type: Spontaneous
  Country: CA (occurrence: CA)
  Receive Date: 20140509
  Receipt Date: 20140509
  Transmission Date: 20141212
  Serious: Yes (Hospitalization, Other)
  Sender: FDA-Public Use
  Company Number: CA-TEVA-480569USA

PATIENT
  Age: 68 Year
  Sex: Female

DRUGS (6)
  1. COTRIMOXAZOLE [Suspect]
     Indication: ANTIFUNGAL PROPHYLAXIS
     Dosage: 160 MG OF TMP, 800 MG OF SMX THREE TIMES WEEKLY
     Route: 065
  2. METHOTREXATE [Interacting]
     Indication: CROHN^S DISEASE
     Route: 030
  3. PREDNISONE [Concomitant]
     Indication: CROHN^S DISEASE
     Dosage: 15MG DAILY
     Route: 048
  4. FOLIC ACID [Concomitant]
     Indication: CROHN^S DISEASE
     Dosage: 1 MG DAILY
     Route: 065
  5. ALENDRONIC ACID [Concomitant]
     Dosage: 10MG DAILY
     Route: 065
  6. VITAMIN D [Concomitant]
     Dosage: 1000 IU DAILY
     Route: 065

REACTIONS (6)
  - Stomatitis [Recovering/Resolving]
  - Pancytopenia [Recovered/Resolved]
  - Febrile neutropenia [Recovered/Resolved]
  - Diarrhoea [Recovering/Resolving]
  - Renal impairment [Recovered/Resolved]
  - Drug interaction [Recovering/Resolving]
